FAERS Safety Report 24785843 (Version 2)
Quarter: 2025Q1

REPORT INFORMATION
  Report Type: Spontaneous
  Country: FR (occurrence: FR)
  Receive Date: 20241229
  Receipt Date: 20250124
  Transmission Date: 20250409
  Serious: Yes (Hospitalization)
  Sender: EMD SERONO INC
  Company Number: FR-AFSSAPS-LL2024002255

PATIENT
  Age: 50 Year
  Sex: Male
  Weight: 76 kg

DRUGS (3)
  1. MAVENCLAD [Suspect]
     Active Substance: CLADRIBINE
     Indication: Relapsing-remitting multiple sclerosis
     Dates: start: 20211101, end: 20211105
  2. MAVENCLAD [Suspect]
     Active Substance: CLADRIBINE
     Dates: start: 20211129, end: 20211203
  3. MAVENCLAD [Suspect]
     Active Substance: CLADRIBINE

REACTIONS (1)
  - Lung adenocarcinoma stage IV [Not Recovered/Not Resolved]

NARRATIVE: CASE EVENT DATE: 20240501
